FAERS Safety Report 4740429-5 (Version None)
Quarter: 2005Q3

REPORT INFORMATION
  Report Type: 
  Country: None (occurrence: None)
  Receive Date: 20050810
  Receipt Date: 20050127
  Transmission Date: 20060218
  Serious: Yes (Other)
  Sender: FDA-Public Use
  Company Number: JP-BRISTOL-MYERS SQUIBB COMPANY-12860086

PATIENT
  Age: 50 Year
  Sex: Male

DRUGS (4)
  1. IFOMIDE [Suspect]
     Indication: SYNOVIAL SARCOMA METASTATIC
     Route: 041
     Dates: start: 20040625, end: 20040625
  2. VEPESID [Suspect]
     Indication: SYNOVIAL SARCOMA METASTATIC
     Route: 041
     Dates: start: 20040623, end: 20040623
  3. PARAPLATIN [Suspect]
     Indication: SYNOVIAL SARCOMA METASTATIC
     Route: 041
     Dates: start: 20040623, end: 20040623
  4. ADRIACIN [Suspect]
     Indication: SYNOVIAL SARCOMA METASTATIC
     Route: 041
     Dates: start: 20040623, end: 20040623

REACTIONS (2)
  - ENCEPHALOPATHY [None]
  - METABOLIC ACIDOSIS [None]
